FAERS Safety Report 24387513 (Version 1)
Quarter: 2024Q4

REPORT INFORMATION
  Report Type: Spontaneous
  Country: GB (occurrence: GB)
  Receive Date: 20241002
  Receipt Date: 20241002
  Transmission Date: 20250114
  Serious: Yes (Other)
  Sender: B BRAUN
  Company Number: GB-B.Braun Medical Inc.-2162356

PATIENT
  Age: 23 Year
  Sex: Female
  Weight: 126 kg

DRUGS (4)
  1. CEFAZOLIN SODIUM [Suspect]
     Active Substance: CEFAZOLIN SODIUM
     Indication: Prophylaxis
     Dates: start: 20240912
  2. ROCURONIUM [Suspect]
     Active Substance: ROCURONIUM BROMIDE
  3. REMIFENTANIL [Concomitant]
     Active Substance: REMIFENTANIL
  4. PROPOFOL [Concomitant]
     Active Substance: PROPOFOL

REACTIONS (3)
  - Hypotension [Recovered/Resolved]
  - Tachycardia [Recovered/Resolved]
  - Erythema [Recovered/Resolved]
